FAERS Safety Report 8580100-5 (Version None)
Quarter: 2012Q3

REPORT INFORMATION
  Report Type: 
  Country: None (occurrence: None)
  Receive Date: 20120808
  Receipt Date: 20120725
  Transmission Date: 20120928
  Serious: Yes (Other)
  Sender: FDA-Public Use
  Company Number: PL-MYLANLABS-2012S1015238

PATIENT
  Age: 36 Year
  Sex: Female

DRUGS (1)
  1. SERTRALINE HYDROCHLORIDE [Suspect]
     Indication: DEPRESSION
     Dosage: INCREASED TO 50 MG/DAY AFTER A FEW DAYS
     Route: 065

REACTIONS (4)
  - HYPERPROLACTINAEMIA [None]
  - BREAST ENLARGEMENT [None]
  - UTERINE HAEMORRHAGE [None]
  - AMENORRHOEA [None]
